FAERS Safety Report 25834540 (Version 2)
Quarter: 2025Q4

REPORT INFORMATION
  Report Type: Report from Study
  Country: US (occurrence: US)
  Receive Date: 20250923
  Receipt Date: 20251202
  Transmission Date: 20260117
  Serious: Yes (Other)
  Sender: BIOCODEX
  Company Number: US-BIOCODEX2-2025000411

PATIENT
  Sex: Male
  Weight: 38.7 kg

DRUGS (18)
  1. DIACOMIT [Suspect]
     Active Substance: STIRIPENTOL
     Indication: Severe myoclonic epilepsy of infancy
     Dosage: 250 MG BY MOUTH THREE TIMES DAILY
     Dates: start: 2025
  2. DIACOMIT [Suspect]
     Active Substance: STIRIPENTOL
     Dosage: 250MG, 250MG, AND 500MG IN THREE SEPARATE DOSES EACH DAY
     Dates: start: 20250403
  3. DIACOMIT [Suspect]
     Active Substance: STIRIPENTOL
     Dosage: TAKE 250MG BY MOUTH THREE TIMES DAILY
     Dates: start: 20250403, end: 20251112
  4. DIACOMIT [Suspect]
     Active Substance: STIRIPENTOL
  5. DIACOMIT [Suspect]
     Active Substance: STIRIPENTOL
  6. DIACOMIT [Suspect]
     Active Substance: STIRIPENTOL
  7. DIACOMIT [Suspect]
     Active Substance: STIRIPENTOL
     Indication: Severe myoclonic epilepsy of infancy
     Dosage: TAKE 500MG BY MOUTH THREE TIMES DAILY
     Dates: start: 20250403
  8. DIACOMIT [Suspect]
     Active Substance: STIRIPENTOL
     Dosage: TAKE 500MG BY MOUTH THREE TIMES DAILY
     Dates: start: 20250326
  9. DIACOMIT [Suspect]
     Active Substance: STIRIPENTOL
  10. DIACOMIT [Suspect]
     Active Substance: STIRIPENTOL
  11. ONFI [Concomitant]
     Active Substance: CLOBAZAM
     Indication: Severe myoclonic epilepsy of infancy
  12. ONFI [Concomitant]
     Active Substance: CLOBAZAM
  13. AZSTARYS [Concomitant]
     Active Substance: DEXMETHYLPHENIDATE HYDROCHLORIDE\SERDEXMETHYLPHENIDATE CHLORIDE
     Indication: Product used for unknown indication
  14. AZSTARYS [Concomitant]
     Active Substance: DEXMETHYLPHENIDATE HYDROCHLORIDE\SERDEXMETHYLPHENIDATE CHLORIDE
  15. DEPAKENE (CAN) [Concomitant]
     Indication: Product used for unknown indication
  16. DEPAKENE (CAN) [Concomitant]
  17. VALPROIC ACID [Concomitant]
     Active Substance: VALPROIC ACID
     Indication: Product used for unknown indication
  18. VALPROIC ACID [Concomitant]
     Active Substance: VALPROIC ACID

REACTIONS (6)
  - Weight increased [Unknown]
  - Obesity [Recovered/Resolved with Sequelae]
  - Vagus nerve disorder [Not Recovered/Not Resolved]
  - Bradykinesia [Not Recovered/Not Resolved]
  - Fall [Not Recovered/Not Resolved]
  - Product preparation issue [Unknown]
